FAERS Safety Report 4664289-6 (Version None)
Quarter: 2005Q2

REPORT INFORMATION
  Report Type: 
  Country: None (occurrence: None)
  Receive Date: 20050516
  Receipt Date: 20050516
  Transmission Date: 20051028
  Serious: Yes (Other)
  Sender: FDA-Public Use
  Company Number: None

PATIENT
  Sex: Female
  Weight: 87.5442 kg

DRUGS (2)
  1. OXYCONTIN [Suspect]
     Indication: NECK PAIN
     Dosage: TWO PO Q 12 HOURS
  2. OXYCONTIN [Suspect]
     Indication: SCOLIOSIS
     Dosage: TWO PO Q 12 HOURS

REACTIONS (3)
  - DRUG EFFECT DECREASED [None]
  - INADEQUATE ANALGESIA [None]
  - PHARMACEUTICAL PRODUCT COMPLAINT [None]
